FAERS Safety Report 9384726 (Version 2)
Quarter: 2013Q3

REPORT INFORMATION
  Report Type: Spontaneous
  Country: US (occurrence: US)
  Receive Date: 20130705
  Receipt Date: 20130725
  Transmission Date: 20140515
  Serious: Yes (Other)
  Sender: FDA-Public Use
  Company Number: US-JNJFOC-20130617364

PATIENT
  Age: 36 Year
  Sex: Female
  Weight: 92.08 kg

DRUGS (12)
  1. INVEGA SUSTENNA [Suspect]
     Indication: SCHIZOPHRENIA
     Route: 030
  2. INVEGA SUSTENNA [Suspect]
     Indication: SCHIZOPHRENIA
     Route: 030
     Dates: start: 20130531
  3. INVEGA SUSTENNA [Suspect]
     Indication: SCHIZOPHRENIA
     Route: 030
     Dates: start: 20130606
  4. INVEGA [Suspect]
     Indication: SCHIZOPHRENIA
     Route: 048
     Dates: start: 20130424, end: 20130531
  5. INVEGA [Suspect]
     Indication: SCHIZOPHRENIA
     Route: 048
  6. GABAPENTIN [Concomitant]
     Indication: IRRITABILITY
     Route: 065
     Dates: start: 20130430, end: 20130625
  7. GABAPENTIN [Concomitant]
     Indication: ANXIETY
     Route: 065
     Dates: start: 20130430, end: 20130625
  8. AMBIEN [Concomitant]
     Indication: INSOMNIA
     Route: 048
     Dates: start: 20130424, end: 20130625
  9. AMBIEN [Concomitant]
     Indication: SLEEP DISORDER
     Route: 048
     Dates: start: 20130424, end: 20130625
  10. PRISTIQ [Concomitant]
     Indication: ANXIETY
     Route: 048
     Dates: start: 20130430, end: 20130625
  11. PRISTIQ [Concomitant]
     Indication: DEPRESSION
     Route: 048
     Dates: start: 20130430, end: 20130625
  12. PRAZOSIN [Concomitant]
     Indication: NIGHTMARE
     Route: 065
     Dates: start: 20130308, end: 20130625

REACTIONS (3)
  - Amenorrhoea [Recovered/Resolved]
  - Galactorrhoea [Recovering/Resolving]
  - Hyperprolactinaemia [Unknown]
